FAERS Safety Report 11925939 (Version 1)
Quarter: 2016Q1

REPORT INFORMATION
  Report Type: Spontaneous
  Country: FR (occurrence: FR)
  Receive Date: 20160119
  Receipt Date: 20160119
  Transmission Date: 20160526
  Serious: Yes (Hospitalization, Other)
  Sender: FDA-Public Use
  Company Number: FR-BRISTOL-MYERS SQUIBB COMPANY-BMS-2016-000471

PATIENT
  Age: 72 Year
  Sex: Female

DRUGS (2)
  1. YERVOY [Suspect]
     Active Substance: IPILIMUMAB
     Indication: METASTATIC MALIGNANT MELANOMA
     Dosage: 4 UNK, UNK
     Route: 042
     Dates: start: 20150520, end: 20150806
  2. INOFER [Concomitant]
     Indication: PRODUCT USED FOR UNKNOWN INDICATION
     Dosage: UNK
     Route: 065
     Dates: end: 20151021

REACTIONS (5)
  - Hypothyroidism [Recovering/Resolving]
  - Adrenal insufficiency [Recovering/Resolving]
  - General physical condition abnormal [Recovering/Resolving]
  - Hypophysitis [Recovering/Resolving]
  - Muscle spasms [Recovered/Resolved]

NARRATIVE: CASE EVENT DATE: 201509
